FAERS Safety Report 4744362-4 (Version None)
Quarter: 2005Q3

REPORT INFORMATION
  Report Type: 
  Country: None (occurrence: None)
  Receive Date: 20050812
  Receipt Date: 20050802
  Transmission Date: 20060218
  Serious: Yes (Death, Other)
  Sender: FDA-Public Use
  Company Number: US-MERCK-0508USA01117

PATIENT
  Sex: Female

DRUGS (1)
  1. VIOXX [Suspect]
     Route: 048
     Dates: start: 19990930, end: 20030724

REACTIONS (8)
  - ACUTE RESPIRATORY FAILURE [None]
  - CEREBROVASCULAR ACCIDENT [None]
  - DEATH [None]
  - HEART RATE IRREGULAR [None]
  - PARALYSIS [None]
  - PNEUMONIA [None]
  - PULMONARY EMBOLISM [None]
  - THROMBOSIS [None]
